FAERS Safety Report 15711791 (Version 1)
Quarter: 2018Q4

REPORT INFORMATION
  Report Type: Spontaneous
  Country: DE (occurrence: DE)
  Receive Date: 20181212
  Receipt Date: 20181212
  Transmission Date: 20190205
  Serious: Yes (Hospitalization, Other)
  Sender: FDA-Public Use
  Company Number: DE-AUROBINDO-AUR-APL-2018-059647

PATIENT
  Sex: Male
  Weight: 117 kg

DRUGS (3)
  1. JARDIANCE [Suspect]
     Active Substance: EMPAGLIFLOZIN
     Indication: TYPE 2 DIABETES MELLITUS
     Dosage: 10 MILLIGRAM, ONCE A DAY
     Route: 048
     Dates: start: 201707, end: 20180706
  2. VICTOZA [Concomitant]
     Active Substance: LIRAGLUTIDE
     Indication: TYPE 2 DIABETES MELLITUS
     Dosage: 1.2 MILLIGRAM, ONCE A DAY
     Route: 058
     Dates: start: 2017, end: 20180706
  3. LOSARTAN FILM-COATED TABLETS [Suspect]
     Active Substance: LOSARTAN
     Indication: DIABETIC NEPHROPATHY
     Dosage: 50 MILLIGRAM, ONCE A DAY
     Route: 048
     Dates: start: 2007

REACTIONS (2)
  - Blood creatinine increased [Unknown]
  - Acute kidney injury [Unknown]
